FAERS Safety Report 4282984-8 (Version None)
Quarter: 2004Q1

REPORT INFORMATION
  Report Type: 
  Country: None (occurrence: None)
  Receive Date: 20040130
  Receipt Date: 20040122
  Transmission Date: 20041129
  Serious: Yes (Hospitalization)
  Sender: FDA-Public Use
  Company Number: PHNU2004DE00651

PATIENT
  Age: 90 Year
  Sex: Female

DRUGS (5)
  1. KARIL [Suspect]
     Indication: OSTEOPOROSIS
     Route: 030
     Dates: start: 19850327, end: 19850801
  2. KARIL [Suspect]
     Route: 030
     Dates: start: 19870101, end: 19870101
  3. KARIL [Suspect]
     Dosage: 1 OR 2 WEEKS ONCE OR TWICE/YEAR
     Route: 030
  4. KARIL [Suspect]
     Dosage: 100 IU, QD
     Route: 058
     Dates: start: 20040101, end: 20040121
  5. KARIL [Suspect]
     Dosage: 100 IU, QOD
     Route: 058
     Dates: start: 20040122

REACTIONS (2)
  - PLANTAR ERYTHEMA [None]
  - SPINAL FRACTURE [None]
